FAERS Safety Report 11044735 (Version 3)
Quarter: 2015Q3

REPORT INFORMATION
  Report Type: Spontaneous
  Country: US (occurrence: None)
  Receive Date: 20150415
  Receipt Date: 20150720
  Transmission Date: 20151125
  Serious: Yes (Other)
  Sender: FDA-Public Use
  Company Number: ADR-2015-00698

PATIENT
  Age: 62 Year
  Sex: Female

DRUGS (3)
  1. MORPHINE INTRATHECAL [Suspect]
     Active Substance: MORPHINE
     Dates: end: 20150422
  2. DILAUDID [Suspect]
     Active Substance: HYDROMORPHONE HYDROCHLORIDE
  3. LIORESAL [Suspect]
     Active Substance: BACLOFEN
     Indication: SPINAL PAIN

REACTIONS (4)
  - Ureteral disorder [None]
  - Renal disorder [None]
  - Liver disorder [None]
  - Chronic kidney disease [None]
